FAERS Safety Report 8624994-3 (Version None)
Quarter: 2012Q3

REPORT INFORMATION
  Report Type: 
  Country: None (occurrence: None)
  Receive Date: 20120827
  Receipt Date: 20120822
  Transmission Date: 20120928
  Serious: Yes (Death)
  Sender: FDA-Public Use
  Company Number: PHHY2012US073339

PATIENT
  Age: 16 Year

DRUGS (1)
  1. TIZANIDINE HYDROCHLORIDE [Suspect]

REACTIONS (1)
  - CARDIAC DISORDER [None]
